FAERS Safety Report 4699850-6 (Version None)
Quarter: 2005Q2

REPORT INFORMATION
  Report Type: 
  Country: None (occurrence: None)
  Receive Date: 20050624
  Receipt Date: 20050331
  Transmission Date: 20051028
  Serious: Yes (Hospitalization)
  Sender: FDA-Public Use
  Company Number: JP-MERCK-0504USA00286

PATIENT
  Age: 83 Year
  Sex: Female
  Weight: 40 kg

DRUGS (5)
  1. COZAAR [Suspect]
     Indication: HYPERTENSION
     Route: 048
     Dates: start: 20050318, end: 20050326
  2. KOLANTYL [Concomitant]
     Indication: GASTRITIS
     Route: 048
     Dates: start: 20030514
  3. SIGMART [Concomitant]
     Indication: ANGINA PECTORIS
     Route: 048
     Dates: start: 19990805
  4. DISOPYRAMIDE PHOSPHATE [Concomitant]
     Indication: ATRIAL FIBRILLATION
     Route: 048
     Dates: start: 20050218
  5. ASPIRIN [Concomitant]
     Indication: THROMBOSIS PROPHYLAXIS
     Route: 048
     Dates: start: 20050218

REACTIONS (2)
  - C-REACTIVE PROTEIN INCREASED [None]
  - RHABDOMYOLYSIS [None]
